FAERS Safety Report 6393108-5 (Version None)
Quarter: 2009Q4

REPORT INFORMATION
  Report Type: 
  Country: None (occurrence: None)
  Receive Date: 20091008
  Receipt Date: 20090925
  Transmission Date: 20100525
  Serious: Yes (Hospitalization)
  Sender: FDA-Public Use
  Company Number: TR-ELI_LILLY_AND_COMPANY-TR200909006220

PATIENT
  Sex: Male

DRUGS (8)
  1. HUMULIN R [Suspect]
     Indication: DIABETES MELLITUS
     Dosage: 18 IU, EACH MORNING
     Route: 058
     Dates: start: 20080828
  2. HUMULIN R [Suspect]
     Dosage: 18 IU, DAILY (1/D)
     Route: 058
     Dates: start: 20080828
  3. HUMULIN R [Suspect]
     Dosage: 18 IU, EACH EVENING
     Route: 058
     Dates: start: 20080828
  4. HUMULIN N [Suspect]
     Indication: DIABETES MELLITUS
     Dosage: 34 IU, DAILY (1/D)
     Route: 058
     Dates: start: 20080828
  5. BELOC /00376903/ [Concomitant]
     Dosage: 50 MG, DAILY (1/D)
     Route: 048
     Dates: start: 20070101
  6. RAMIPRIL [Concomitant]
     Dosage: 5 MG, DAILY (1/D)
     Route: 048
     Dates: start: 20070101
  7. DISPRIL                            /00002701/ [Concomitant]
     Dosage: UNK, DAILY (1/D)
     Route: 048
     Dates: start: 20070101
  8. TRENTAL [Concomitant]
     Dosage: UNK, 3/D
     Route: 048
     Dates: start: 20080101

REACTIONS (1)
  - WOUND [None]
